FAERS Safety Report 12746542 (Version 1)
Quarter: 2016Q3

REPORT INFORMATION
  Report Type: Spontaneous
  Country: JP (occurrence: JP)
  Receive Date: 20160915
  Receipt Date: 20160915
  Transmission Date: 20161109
  Serious: Yes (Other)
  Sender: FDA-Public Use
  Company Number: JP-JNJFOC-20160623521

PATIENT
  Age: 55 Year
  Sex: Male

DRUGS (16)
  1. PEGASYS [Suspect]
     Active Substance: PEGINTERFERON ALFA-2A
     Indication: ANTIVIRAL TREATMENT
     Route: 030
     Dates: start: 20141020, end: 20141027
  2. PEGASYS [Suspect]
     Active Substance: PEGINTERFERON ALFA-2A
     Indication: ANTIVIRAL TREATMENT
     Route: 030
     Dates: start: 20140728, end: 20140728
  3. MUCOSTA [Concomitant]
     Active Substance: REBAMIPIDE
     Route: 065
  4. PEGASYS [Suspect]
     Active Substance: PEGINTERFERON ALFA-2A
     Indication: ANTIVIRAL TREATMENT
     Route: 030
     Dates: start: 20140714, end: 20140722
  5. PEGASYS [Suspect]
     Active Substance: PEGINTERFERON ALFA-2A
     Indication: ANTIVIRAL TREATMENT
     Route: 030
     Dates: start: 20141104, end: 20141201
  6. BAYASPIRIN [Concomitant]
     Active Substance: ASPIRIN
     Route: 048
  7. WARFARIN [Concomitant]
     Active Substance: WARFARIN
     Route: 048
  8. COPEGUS [Suspect]
     Active Substance: RIBAVIRIN
     Indication: ANTIVIRAL TREATMENT
     Route: 048
     Dates: start: 20140714, end: 20141222
  9. PEGASYS [Suspect]
     Active Substance: PEGINTERFERON ALFA-2A
     Indication: ANTIVIRAL TREATMENT
     Route: 030
     Dates: start: 20140818, end: 20140818
  10. PEGASYS [Suspect]
     Active Substance: PEGINTERFERON ALFA-2A
     Indication: ANTIVIRAL TREATMENT
     Route: 030
     Dates: start: 20141208, end: 20141222
  11. PROGRAF [Concomitant]
     Active Substance: TACROLIMUS\TACROLIMUS ANHYDROUS
     Route: 065
  12. MAGLAX [Concomitant]
     Active Substance: MAGNESIUM OXIDE
     Route: 048
  13. SOVRIAD [Suspect]
     Active Substance: SIMEPREVIR
     Indication: ANTIVIRAL PROPHYLAXIS
     Route: 048
     Dates: start: 20140714, end: 20141005
  14. PEGASYS [Suspect]
     Active Substance: PEGINTERFERON ALFA-2A
     Indication: ANTIVIRAL TREATMENT
     Route: 030
     Dates: start: 20141006, end: 20141014
  15. PEGASYS [Suspect]
     Active Substance: PEGINTERFERON ALFA-2A
     Indication: ANTIVIRAL TREATMENT
     Route: 030
     Dates: start: 20140804, end: 20140811
  16. PEGASYS [Suspect]
     Active Substance: PEGINTERFERON ALFA-2A
     Indication: ANTIVIRAL TREATMENT
     Route: 030
     Dates: start: 20140825, end: 20140929

REACTIONS (1)
  - Neutrophil count decreased [Recovered/Resolved]

NARRATIVE: CASE EVENT DATE: 20140728
